FAERS Safety Report 5521730-4 (Version None)
Quarter: 2007Q4

REPORT INFORMATION
  Report Type: 
  Country: None (occurrence: None)
  Receive Date: 20071120
  Receipt Date: 20071112
  Transmission Date: 20080405
  Serious: Yes (Other)
  Sender: FDA-Public Use
  Company Number: US-ASTRAZENECA-2006UW14081

PATIENT
  Age: 76 Year
  Sex: Female
  Weight: 74.8 kg

DRUGS (4)
  1. ARIMIDEX [Suspect]
     Indication: BREAST CANCER
     Route: 048
     Dates: start: 20050101
  2. TAMOXIFEN CITRATE [Concomitant]
     Route: 048
  3. ACTONEL [Concomitant]
  4. CALCIUM [Concomitant]

REACTIONS (3)
  - ANAEMIA [None]
  - COMPRESSION FRACTURE [None]
  - HAEMORRHAGE [None]
